FAERS Safety Report 7718467-X (Version None)
Quarter: 2011Q3

REPORT INFORMATION
  Report Type: 
  Country: None (occurrence: None)
  Receive Date: 20110830
  Receipt Date: 20110829
  Transmission Date: 20111222
  Serious: Yes (Death)
  Sender: FDA-Public Use
  Company Number: PHHY2011PE76690

PATIENT
  Sex: Female

DRUGS (1)
  1. EXELON [Suspect]
     Dosage: EXELON PATCH 10CM
     Route: 062
     Dates: start: 20110615

REACTIONS (1)
  - DEATH [None]
